FAERS Safety Report 18106893 (Version 2)
Quarter: 2020Q3

REPORT INFORMATION
  Report Type: Spontaneous
  Country: JP (occurrence: JP)
  Receive Date: 20200803
  Receipt Date: 20200813
  Transmission Date: 20201103
  Serious: Yes (Other)
  Sender: FDA-Public Use
  Company Number: JP-ELI_LILLY_AND_COMPANY-JP202007010485

PATIENT
  Age: 64 Year

DRUGS (2)
  1. GEMZAR [Suspect]
     Active Substance: GEMCITABINE HYDROCHLORIDE
     Indication: BILE DUCT CANCER
     Route: 042
  2. CISPLATIN. [Concomitant]
     Active Substance: CISPLATIN
     Indication: BILE DUCT CANCER
     Route: 042

REACTIONS (1)
  - Cardiomyopathy [Unknown]
